FAERS Safety Report 26013654 (Version 1)
Quarter: 2025Q4

REPORT INFORMATION
  Report Type: Spontaneous
  Country: US (occurrence: US)
  Receive Date: 20251107
  Receipt Date: 20251107
  Transmission Date: 20260117
  Serious: No
  Sender: GE HEALTHCARE
  Company Number: US-GE HEALTHCARE-2025CSU015285

PATIENT
  Age: 69 Year
  Sex: Female
  Weight: 59 kg

DRUGS (1)
  1. VIZAMYL [Suspect]
     Active Substance: FLUTEMETAMOL F-18
     Indication: Imaging procedure
     Dosage: 162.8 MBQ, TOTAL
     Route: 042
     Dates: start: 20251028

REACTIONS (2)
  - Throat irritation [Recovered/Resolved]
  - Flushing [Recovered/Resolved]

NARRATIVE: CASE EVENT DATE: 20251028
